FAERS Safety Report 6747203-9 (Version None)
Quarter: 2010Q2

REPORT INFORMATION
  Report Type: 
  Country: None (occurrence: None)
  Receive Date: 20100528
  Receipt Date: 20100513
  Transmission Date: 20101027
  Serious: Yes (Life-Threatening)
  Sender: FDA-Public Use
  Company Number: DE-BAUSCH-2010BL002568

PATIENT
  Age: 17 Year
  Sex: Female

DRUGS (10)
  1. SALBUTAMOL [Suspect]
     Indication: ASTHMA
     Route: 049
  2. THEOPHYLLINE [Suspect]
     Route: 042
  3. SALBUTAMOL [Suspect]
     Route: 049
  4. SALBUTAMOL [Suspect]
     Route: 042
  5. SALBUTAMOL [Suspect]
     Route: 042
  6. THEOPHYLLINE [Suspect]
     Route: 042
  7. BUDESONIDE [Concomitant]
     Indication: ASTHMA
     Route: 049
  8. FORMOTEROL [Concomitant]
     Indication: ASTHMA
     Route: 049
  9. MONTELUKAST SODIUM [Concomitant]
     Indication: ASTHMA
  10. PREDNISOLONE [Concomitant]
     Indication: ASTHMA
     Route: 042

REACTIONS (1)
  - HYPERLACTACIDAEMIA [None]
